FAERS Safety Report 15730421 (Version 3)
Quarter: 2019Q3

REPORT INFORMATION
  Report Type: Spontaneous
  Country: US (occurrence: US)
  Receive Date: 20181217
  Receipt Date: 20190724
  Transmission Date: 20191004
  Serious: Yes (Other)
  Sender: FDA-Public Use
  Company Number: US-SA-2018SA337875

PATIENT
  Age: 47 Year
  Sex: Female
  Weight: 74 kg

DRUGS (5)
  1. CYTOXAN [Concomitant]
     Active Substance: CYCLOPHOSPHAMIDE
  2. ADRIAMYCIN [Concomitant]
     Active Substance: DOXORUBICIN HYDROCHLORIDE
  3. TAXOTERE [Suspect]
     Active Substance: DOCETAXEL
     Dosage: 140 MG, Q3W
     Route: 042
     Dates: start: 20090413, end: 20090413
  4. NEOSAR [Concomitant]
     Active Substance: CYCLOPHOSPHAMIDE
  5. TAXOTERE [Suspect]
     Active Substance: DOCETAXEL
     Indication: BREAST CANCER FEMALE
     Dosage: 140 MG, Q3W
     Route: 042
     Dates: start: 20081229, end: 20081229

REACTIONS (6)
  - Impaired quality of life [Unknown]
  - Pain [Unknown]
  - Alopecia [Recovering/Resolving]
  - Emotional distress [Unknown]
  - Psychological trauma [Unknown]
  - Anxiety [Unknown]

NARRATIVE: CASE EVENT DATE: 20090129
